FAERS Safety Report 9240917 (Version 1)
Quarter: 2013Q1

REPORT INFORMATION
  Report Type: Spontaneous
  Country: US (occurrence: None)
  Receive Date: 20121120
  Receipt Date: 20121120
  Transmission Date: 20140127
  Serious: No
  Sender: FDA-Public Use
  Company Number: 1000037397

PATIENT
  Age: 45 Year
  Sex: Female

DRUGS (2)
  1. VIIBYRD [Suspect]
     Dosage: STOPPED
     Route: 048
  2. SYNTHROID (LEVOTHYROXINE SODIUM) (LEVOTHYROXINE SODIUM) [Concomitant]

REACTIONS (1)
  - Myalgia [None]
